FAERS Safety Report 20746290 (Version 1)
Quarter: 2022Q2

REPORT INFORMATION
  Report Type: Spontaneous
  Country: DE (occurrence: DE)
  Receive Date: 20220425
  Receipt Date: 20220425
  Transmission Date: 20220721
  Serious: Yes (Hospitalization)
  Sender: FDA-Public Use
  Company Number: DE-NOVARTISPH-NVSC2022DE094818

PATIENT
  Age: 71 Year
  Sex: Male
  Weight: 81 kg

DRUGS (6)
  1. DEXAMETHASONE [Suspect]
     Active Substance: DEXAMETHASONE
     Indication: Plasma cell myeloma
     Dosage: 40 MG
     Route: 065
     Dates: start: 20210607, end: 20210920
  2. CYCLOPHOSPHAMIDE [Suspect]
     Active Substance: CYCLOPHOSPHAMIDE
     Indication: Plasma cell myeloma
     Dosage: 3920 MG
     Route: 065
     Dates: start: 20211012, end: 20211013
  3. BORTEZOMIB [Suspect]
     Active Substance: BORTEZOMIB
     Indication: Plasma cell myeloma
     Dosage: 2.6 MG
     Route: 065
  4. GRANULOCYTE COLONY-STIMULATING FACTOR NOS [Suspect]
     Active Substance: GRANULOCYTE COLONY-STIMULATING FACTOR NOS
     Indication: Plasma cell myeloma
     Dosage: 6 MG
     Route: 065
     Dates: start: 20211014, end: 20211014
  5. THALIDOMIDE [Suspect]
     Active Substance: THALIDOMIDE
     Indication: Plasma cell myeloma
     Dosage: 100 MG
     Route: 065
     Dates: start: 20210607, end: 20211003
  6. DARATUMUMAB [Suspect]
     Active Substance: DARATUMUMAB
     Indication: Plasma cell myeloma
     Dosage: 1295 MG
     Route: 042
     Dates: start: 20210607, end: 20210920

REACTIONS (1)
  - Cytopenia [Recovering/Resolving]

NARRATIVE: CASE EVENT DATE: 20211019
